FAERS Safety Report 10156627 (Version 1)
Quarter: 2014Q2

REPORT INFORMATION
  Report Type: Report from Study
  Country: US (occurrence: None)
  Receive Date: 20140505
  Receipt Date: 20140505
  Transmission Date: 20141212
  Serious: Yes (Hospitalization)
  Sender: FDA-Public Use
  Company Number: 20140233

PATIENT
  Age: 79 Year
  Sex: Female
  Weight: 67.13 kg

DRUGS (22)
  1. INJECTAFER [Suspect]
     Indication: IRON DEFICIENCY ANAEMIA
     Route: 042
     Dates: start: 20131113, end: 20131120
  2. ACTOS (PIOGLITAZONE) [Concomitant]
  3. ASPIRIN [Concomitant]
  4. B-12 (CYANOCOBALAMIN) [Concomitant]
  5. DEXILANT, ADA KAPIDEX (DEXLANSOPRAZOLE) [Concomitant]
  6. DIOVAN (VALSARTAN) [Concomitant]
  7. FLOMAX (TAMSULOSIN) [Concomitant]
  8. FOLVITE (FOLIC ACID) [Concomitant]
  9. LASIX (FUROSEMIDE) [Concomitant]
  10. LYRICA (PREGABALIN) [Concomitant]
  11. METFORMIN [Concomitant]
  12. NORCO (HYDROCODONE-ACETAMINOPHEN 5-325) [Concomitant]
  13. PLAVIX (CLOPIDOGREL) [Concomitant]
  14. PROAIR HFA [Concomitant]
  15. SYNTHROID [Concomitant]
  16. TOPROL XL (METOPROLOL SUCCINATE) (100 MILLIGRAM) (METOPROLOL SUCCINATE) [Concomitant]
  17. ZETIA [Concomitant]
  18. FENOFIBRATE [Concomitant]
  19. ANTI-DIARRHEA MEDICATION [Concomitant]
  20. HYDRALAZINE [Concomitant]
  21. POLYETHYLENE GLYCOL [Concomitant]
  22. SOTAOLOL [Concomitant]

REACTIONS (5)
  - Cardiac failure congestive [None]
  - Arthralgia [None]
  - Renal failure acute [None]
  - Chronic obstructive pulmonary disease [None]
  - Respiratory distress [None]
